FAERS Safety Report 6852333-7 (Version None)
Quarter: 2010Q3

REPORT INFORMATION
  Report Type: 
  Country: None (occurrence: None)
  Receive Date: 20100717
  Receipt Date: 20071113
  Transmission Date: 20110219
  Serious: No
  Sender: FDA-Public Use
  Company Number: US-PFIZER INC-2007096654

PATIENT
  Sex: Female
  Weight: 59.4 kg

DRUGS (10)
  1. CHANTIX [Suspect]
     Indication: SMOKING CESSATION THERAPY
     Dates: start: 20071001
  2. TARKA [Concomitant]
     Indication: HYPERTENSION
  3. KLONOPIN [Concomitant]
     Indication: RESTLESS LEGS SYNDROME
  4. ZETIA [Concomitant]
     Indication: BLOOD CHOLESTEROL INCREASED
  5. HERBAL PREPARATION [Concomitant]
  6. ALBUTEROL [Concomitant]
     Indication: ASTHMA
     Route: 055
  7. SERETIDE MITE [Concomitant]
     Indication: ASTHMA
     Route: 055
  8. TIOTROPIUM BROMIDE [Concomitant]
     Indication: ASTHMA
     Route: 055
  9. ACTONEL [Concomitant]
  10. PREMARIN [Concomitant]

REACTIONS (3)
  - ERUCTATION [None]
  - FEELING ABNORMAL [None]
  - NAUSEA [None]
